FAERS Safety Report 10094843 (Version 1)
Quarter: 2014Q2

REPORT INFORMATION
  Report Type: Spontaneous
  Country: AU (occurrence: AU)
  Receive Date: 20140422
  Receipt Date: 20140422
  Transmission Date: 20141212
  Serious: Yes (Other)
  Sender: FDA-Public Use
  Company Number: AU-JNJFOC-20140405882

PATIENT
  Sex: Female

DRUGS (1)
  1. CAELYX (DOXORUBICIN HYDROCHLORIDE) [Suspect]
     Indication: OVARIAN CANCER RECURRENT
     Route: 042
     Dates: start: 201303

REACTIONS (2)
  - Disease progression [Unknown]
  - Metastases to peritoneum [Unknown]
